FAERS Safety Report 6604355-9 (Version None)
Quarter: 2010Q1

REPORT INFORMATION
  Report Type: 
  Country: None (occurrence: None)
  Receive Date: 20100226
  Receipt Date: 20090831
  Transmission Date: 20100710
  Serious: No
  Sender: FDA-Public Use
  Company Number: A0805187A

PATIENT
  Age: 27 Year
  Sex: Female

DRUGS (19)
  1. LAMICTAL CD [Suspect]
     Indication: BIPOLAR DISORDER
     Dosage: 200MG TWICE PER DAY
     Route: 048
     Dates: start: 20050801
  2. LAMOTRIGINE [Suspect]
     Indication: BIPOLAR DISORDER
     Route: 048
  3. LAMOTRIGINE [Suspect]
     Route: 048
  4. ADVAIR DISKUS 100/50 [Concomitant]
  5. FIORICET [Concomitant]
  6. NEXIUM [Concomitant]
  7. SINGULAIR [Concomitant]
  8. VISTARIL [Concomitant]
  9. ZANAFLEX [Concomitant]
  10. KLONOPIN [Concomitant]
  11. TRAZODONE HCL [Concomitant]
  12. ZOLOFT [Concomitant]
  13. DIFFERIN [Concomitant]
  14. LIDEX [Concomitant]
  15. MYCOLOG-II [Concomitant]
  16. DILAUDID [Concomitant]
  17. LORTAB [Concomitant]
  18. NASONEX [Concomitant]
  19. ZYRTEC [Concomitant]

REACTIONS (4)
  - HYPERSENSITIVITY [None]
  - LIP SWELLING [None]
  - RASH [None]
  - RASH ERYTHEMATOUS [None]
